FAERS Safety Report 5419051-3 (Version None)
Quarter: 2007Q3

REPORT INFORMATION
  Report Type: 
  Country: None (occurrence: None)
  Receive Date: 20070820
  Receipt Date: 20070814
  Transmission Date: 20080115
  Serious: Yes (Other)
  Sender: FDA-Public Use
  Company Number: PHEH2006US01247

PATIENT

DRUGS (9)
  1. ZOMETA [Suspect]
     Indication: HYPERCALCAEMIA OF MALIGNANCY
     Dosage: UNK, UNK
     Dates: start: 20040101
  2. PLAVIX [Concomitant]
  3. ASPIRIN [Concomitant]
  4. LIPITOR [Concomitant]
  5. ATENOLOL [Concomitant]
  6. OMEGA 3 [Concomitant]
  7. VITAMIN B-12 [Concomitant]
  8. FOLIC ACID [Concomitant]
  9. XANAX [Concomitant]

REACTIONS (18)
  - BIOPSY BONE ABNORMAL [None]
  - BONE DENSITY DECREASED [None]
  - BONE DISORDER [None]
  - CULTURE [None]
  - CYST [None]
  - DEAFNESS [None]
  - FISTULA [None]
  - INFECTION [None]
  - JAW LESION EXCISION [None]
  - NUCLEAR MAGNETIC RESONANCE IMAGING BRAIN [None]
  - OEDEMA [None]
  - OSTEOMYELITIS [None]
  - OSTEONECROSIS [None]
  - PAIN IN JAW [None]
  - PRIMARY SEQUESTRUM [None]
  - PURULENT DISCHARGE [None]
  - SWELLING [None]
  - TOOTHACHE [None]
